FAERS Safety Report 9246398 (Version 1)
Quarter: 2013Q2

REPORT INFORMATION
  Report Type: Spontaneous
  Country: US (occurrence: US)
  Receive Date: 20130422
  Receipt Date: 20130422
  Transmission Date: 20140414
  Serious: Yes (Hospitalization)
  Sender: FDA-Public Use
  Company Number: US-NICOBRDEVP-2013-07066

PATIENT
  Age: 53 Year
  Sex: Male

DRUGS (5)
  1. LORAZEPAM (UNKNOWN) [Suspect]
     Indication: PRODUCT USED FOR UNKNOWN INDICATION
     Dosage: 1 MG, UNK
     Route: 042
     Dates: start: 20130207
  2. LORAZEPAM (UNKNOWN) [Suspect]
     Dosage: 2 UNK, UNK
     Route: 048
     Dates: start: 20130208
  3. DIPHENHYDRAMINE HYDROCHLORIDE (UNKNOWN) [Suspect]
     Indication: PRODUCT USED FOR UNKNOWN INDICATION
     Dosage: 25 MG, UNK
     Route: 042
     Dates: start: 20130207
  4. DIAZEPAM (UNKNOWN) [Suspect]
     Indication: PRODUCT USED FOR UNKNOWN INDICATION
     Dosage: 1 MG, UNK
     Route: 042
     Dates: start: 20130207
  5. HALOPERIDOL [Concomitant]
     Indication: PRODUCT USED FOR UNKNOWN INDICATION
     Dosage: 5 MG, UNK
     Route: 048

REACTIONS (12)
  - Delusion [Recovered/Resolved]
  - Sinus tachycardia [Recovered/Resolved]
  - Atrioventricular block first degree [Recovered/Resolved]
  - Anxiety [Recovered/Resolved]
  - Speech disorder [Recovered/Resolved]
  - Abnormal behaviour [Recovered/Resolved]
  - Psychotic disorder [Recovered/Resolved]
  - Nervousness [Recovered/Resolved]
  - Agitation [Recovered/Resolved]
  - Tachycardia [Recovered/Resolved]
  - Paranoia [Recovered/Resolved]
  - Cognitive disorder [Recovered/Resolved]
